FAERS Safety Report 24847724 (Version 1)
Quarter: 2025Q1

REPORT INFORMATION
  Report Type: Spontaneous
  Country: US (occurrence: US)
  Receive Date: 20250116
  Receipt Date: 20250116
  Transmission Date: 20250409
  Serious: Yes (Hospitalization, Other)
  Sender: NOVARTIS
  Company Number: US-002147023-NVSC2025US005322

PATIENT
  Age: 57 Year
  Sex: Male

DRUGS (1)
  1. PLUVICTO [Suspect]
     Active Substance: LUTETIUM LU-177 VIPIVOTIDE TETRAXETAN
     Indication: Hormone-refractory prostate cancer
     Route: 065

REACTIONS (9)
  - Metastases to bone [Unknown]
  - Metastases to central nervous system [Unknown]
  - Hormone-refractory prostate cancer [Unknown]
  - Malignant neoplasm progression [Unknown]
  - Pain [Unknown]
  - Gait inability [Unknown]
  - Back pain [Unknown]
  - Asthenia [Unknown]
  - Treatment failure [Not Recovered/Not Resolved]
